FAERS Safety Report 13197861 (Version 1)
Quarter: 2017Q1

REPORT INFORMATION
  Report Type: Spontaneous
  Country: US (occurrence: US)
  Receive Date: 20170207
  Receipt Date: 20170207
  Transmission Date: 20170428
  Serious: No
  Sender: FDA-Public Use
  Company Number: None

PATIENT
  Sex: Female

DRUGS (1)
  1. IBRANCE [Suspect]
     Active Substance: PALBOCICLIB
     Indication: BREAST CANCER FEMALE
     Dosage: FREQUENCY - DAILY FOR 21 DAYS ON, 7 OFF
     Route: 048
     Dates: start: 20170105

REACTIONS (5)
  - Diarrhoea [None]
  - Full blood count abnormal [None]
  - Haemoglobin decreased [None]
  - Fatigue [None]
  - White blood cell count decreased [None]
